FAERS Safety Report 4887715-6 (Version None)
Quarter: 2006Q1

REPORT INFORMATION
  Report Type: 
  Country: None (occurrence: None)
  Receive Date: 20060119
  Receipt Date: 20060119
  Transmission Date: 20060701
  Serious: No
  Sender: FDA-Public Use
  Company Number: None

PATIENT
  Age: 22 Year
  Sex: Female

DRUGS (2)
  1. ALARIS SIGNATURE INFUSION PUMP [Suspect]
  2. OXYTOCIN [Suspect]
     Dosage: SOLUTION

REACTIONS (4)
  - DEVICE MALFUNCTION [None]
  - INCORRECT DOSE ADMINISTERED [None]
  - INCORRECT DRUG ADMINISTRATION RATE [None]
  - MEDICATION ERROR [None]
